FAERS Safety Report 15471332 (Version 1)
Quarter: 2018Q4

REPORT INFORMATION
  Report Type: Spontaneous
  Country: US (occurrence: US)
  Receive Date: 20181006
  Receipt Date: 20181006
  Transmission Date: 20190205
  Serious: Yes (Death)
  Sender: FDA-Public Use
  Company Number: US-SENTYNL THERAPEUTICS, INC.  -2055743

PATIENT
  Age: 55 Year
  Sex: Female

DRUGS (4)
  1. LEVORPHANOL TARTRATE. [Suspect]
     Active Substance: LEVORPHANOL TARTRATE
     Indication: PAIN
  2. HYSINGLA ER [Suspect]
     Active Substance: HYDROCODONE BITARTRATE
  3. CYCLOBENZAPRINE. [Suspect]
     Active Substance: CYCLOBENZAPRINE
  4. GABAPENTIN. [Suspect]
     Active Substance: GABAPENTIN

REACTIONS (2)
  - Intentional overdose [Fatal]
  - Completed suicide [Fatal]

NARRATIVE: CASE EVENT DATE: 20180901
